FAERS Safety Report 10084592 (Version 1)
Quarter: 2014Q2

REPORT INFORMATION
  Report Type: Spontaneous
  Country: BR (occurrence: BR)
  Receive Date: 20140417
  Receipt Date: 20140417
  Transmission Date: 20141212
  Serious: Yes (Other)
  Sender: FDA-Public Use
  Company Number: BR-BRISTOL-MYERS SQUIBB COMPANY-20611000

PATIENT
  Age: 80 Year
  Sex: Female
  Weight: 82 kg

DRUGS (8)
  1. KOMBIGLYZE XR [Suspect]
     Indication: TYPE 2 DIABETES MELLITUS
     Dosage: TABS: 1DF=5/1000 MG
     Route: 048
  2. DIAMICRON [Concomitant]
     Indication: TYPE 2 DIABETES MELLITUS
     Dosage: TABS
  3. PHARMATON [Concomitant]
  4. CALTREN [Concomitant]
  5. BENICAR [Concomitant]
     Indication: HYPERTENSION
     Dosage: 1DF=40/12.5MG
  6. FRONTAL [Concomitant]
  7. STILNOX [Concomitant]
  8. OMEPRAZOLE [Concomitant]
     Indication: PROPHYLAXIS

REACTIONS (3)
  - Retinal disorder [Unknown]
  - Fall [Unknown]
  - Urinary tract infection [Recovered/Resolved]
